FAERS Safety Report 4904052-1 (Version None)
Quarter: 2006Q1

REPORT INFORMATION
  Report Type: 
  Country: None (occurrence: None)
  Receive Date: 20060208
  Receipt Date: 20040220
  Transmission Date: 20060701
  Serious: No
  Sender: FDA-Public Use
  Company Number: US-GLAXOSMITHKLINE-A0502435A

PATIENT
  Age: 24 Year
  Sex: Male

DRUGS (2)
  1. PAXIL [Suspect]
     Indication: ANXIETY
     Dosage: 20MG PER DAY
     Route: 048
     Dates: start: 20000419, end: 20000801
  2. SYNTHROID [Concomitant]

REACTIONS (13)
  - ABDOMINAL DISCOMFORT [None]
  - ANXIETY [None]
  - ASTHENIA [None]
  - COORDINATION ABNORMAL [None]
  - DIZZINESS [None]
  - DRUG WITHDRAWAL SYNDROME [None]
  - FATIGUE [None]
  - HEADACHE [None]
  - INFLUENZA [None]
  - MIGRAINE [None]
  - NERVOUSNESS [None]
  - PARAESTHESIA [None]
  - VERTIGO [None]
